FAERS Safety Report 7495425-4 (Version None)
Quarter: 2011Q2

REPORT INFORMATION
  Report Type: 
  Country: None (occurrence: None)
  Receive Date: 20110523
  Receipt Date: 20110325
  Transmission Date: 20111010
  Serious: No
  Sender: FDA-Public Use
  Company Number: US-TYCO HEALTHCARE/MALLINCKRODT-T201100660

PATIENT
  Sex: Male

DRUGS (8)
  1. DIAZEPAM [Concomitant]
     Dosage: 10 MG, QD
  2. ASTEPRO [Concomitant]
     Dosage: UNK
  3. AMBIEN [Concomitant]
     Dosage: 10 MG, QHS
  4. LISINOPRIL [Concomitant]
     Dosage: 10 MG, QD
  5. OMNARIS [Concomitant]
     Dosage: UNK
  6. HYDROCODONE BITARTRATE AND ACETAMINOPHEN [Concomitant]
     Indication: PAIN
     Dosage: UNK, BID
  7. TRAZODONE HCL [Concomitant]
     Dosage: 50 MG QHS
  8. FENTANYL-100 [Suspect]
     Indication: PAIN
     Dosage: 100 UG, Q72 HR
     Dates: start: 20110314

REACTIONS (1)
  - DRUG EFFECT DECREASED [None]
